FAERS Safety Report 5097873-9 (Version None)
Quarter: 2006Q3

REPORT INFORMATION
  Report Type: 
  Country: None (occurrence: None)
  Receive Date: 20060905
  Receipt Date: 20060822
  Transmission Date: 20061208
  Serious: Yes (Death)
  Sender: FDA-Public Use
  Company Number: 112218ISR

PATIENT
  Sex: Male

DRUGS (3)
  1. LAMOTRIGINE [Suspect]
     Indication: EPILEPSY
     Dosage: ORAL
     Route: 048
     Dates: start: 20000801, end: 20000920
  2. VALPROATE SODIUM [Concomitant]
  3. GABAPENTIN [Concomitant]

REACTIONS (1)
  - SUDDEN DEATH [None]
